FAERS Safety Report 6300380-6 (Version None)
Quarter: 2009Q3

REPORT INFORMATION
  Report Type: 
  Country: None (occurrence: None)
  Receive Date: 20090806
  Receipt Date: 20090309
  Transmission Date: 20100115
  Serious: No
  Sender: FDA-Public Use
  Company Number: US-ABBOTT-08P-163-0458590-00

PATIENT
  Sex: Male
  Weight: 117.13 kg

DRUGS (10)
  1. DEPAKOTE ER [Suspect]
     Indication: CONVULSION
     Route: 048
     Dates: start: 20070801
  2. KEPPRA [Concomitant]
     Indication: CONVULSION
     Route: 048
  3. CLONAZEPAM [Concomitant]
     Indication: CONVULSION
     Route: 048
  4. TOPAMAX [Concomitant]
     Indication: CONVULSION
     Route: 048
  5. ENALAPRIL MALEATE [Concomitant]
     Indication: BLOOD PRESSURE
     Route: 048
  6. AMYLODIPINE BESYLATE [Concomitant]
     Indication: DRUG USE FOR UNKNOWN INDICATION
     Route: 048
  7. ADVIL [Concomitant]
     Indication: PAIN
     Route: 048
  8. M.V.I. [Concomitant]
     Indication: VITAMIN SUPPLEMENTATION
     Route: 048
  9. DIASTAT [Concomitant]
     Indication: CONVULSION
     Route: 054
  10. TYLENOL (CAPLET) [Concomitant]
     Indication: PAIN
     Route: 048

REACTIONS (4)
  - ABNORMAL BEHAVIOUR [None]
  - DRUG LEVEL DECREASED [None]
  - FOOT FRACTURE [None]
  - JOINT SPRAIN [None]
